FAERS Safety Report 11847772 (Version 2)
Quarter: 2017Q1

REPORT INFORMATION
  Report Type: Spontaneous
  Country: FR (occurrence: FR)
  Receive Date: 20151217
  Receipt Date: 20170224
  Transmission Date: 20170428
  Serious: Yes (Hospitalization)
  Sender: FDA-Public Use
  Company Number: FR-GILEAD-2015-0188680

PATIENT
  Age: 62 Year
  Sex: Male

DRUGS (7)
  1. ZYDELIG [Suspect]
     Active Substance: IDELALISIB
     Indication: NON-HODGKIN^S LYMPHOMA
     Dosage: UNK
     Route: 048
     Dates: start: 201503, end: 20151111
  2. TEMERIT [Concomitant]
     Active Substance: NEBIVOLOL
     Dosage: UNK
  3. ZYDELIG [Suspect]
     Active Substance: IDELALISIB
     Dosage: 100 MG, BID
     Route: 048
     Dates: start: 201602
  4. DIFFU K [Concomitant]
     Active Substance: POTASSIUM CHLORIDE
  5. LASILIX                            /00032601/ [Concomitant]
     Active Substance: FUROSEMIDE
  6. COVERSYL                           /00790702/ [Concomitant]
     Active Substance: PERINDOPRIL
  7. NEURONTIN [Concomitant]
     Active Substance: GABAPENTIN
     Dosage: UNK

REACTIONS (4)
  - Diarrhoea [Recovered/Resolved]
  - Dehydration [Recovered/Resolved]
  - Eating disorder [Recovered/Resolved]
  - Colitis [Recovering/Resolving]

NARRATIVE: CASE EVENT DATE: 201511
